FAERS Safety Report 12387934 (Version 2)
Quarter: 2016Q3

REPORT INFORMATION
  Report Type: Spontaneous
  Country: IT (occurrence: IT)
  Receive Date: 20160520
  Receipt Date: 20160707
  Transmission Date: 20161109
  Serious: Yes (Death, Hospitalization)
  Sender: FDA-Public Use
  Company Number: IT-ROCHE-1760202

PATIENT
  Age: 62 Year
  Sex: Male
  Weight: 55 kg

DRUGS (1)
  1. ESBRIET [Suspect]
     Active Substance: PIRFENIDONE
     Indication: IDIOPATHIC PULMONARY FIBROSIS
     Dosage: BLISTER PACK (PVC/PE/PCTFE/AL)^ 252 (4X63) HARD CAPSULE
     Route: 048
     Dates: start: 20160204, end: 20160423

REACTIONS (4)
  - Dyspnoea exertional [Fatal]
  - Pleural effusion [Fatal]
  - Respiratory failure [Fatal]
  - Leukocytosis [Fatal]

NARRATIVE: CASE EVENT DATE: 20160423
